FAERS Safety Report 9366639 (Version 1)
Quarter: 2013Q2

REPORT INFORMATION
  Report Type: Spontaneous
  Country: FR (occurrence: FR)
  Receive Date: 20130625
  Receipt Date: 20130625
  Transmission Date: 20140414
  Serious: Yes (Hospitalization, Other)
  Sender: FDA-Public Use
  Company Number: FR-009507513-1306FRA007174

PATIENT
  Age: 57 Year
  Sex: Male

DRUGS (9)
  1. FOSAVANCE [Suspect]
     Dosage: 1 DF, QW
     Route: 048
     Dates: end: 20100330
  2. CELLCEPT [Suspect]
     Dosage: 4 DF, QD
     Route: 048
     Dates: start: 200801, end: 20100330
  3. VASTAREL [Suspect]
     Dosage: 2 DF, QD
     Route: 048
     Dates: start: 200909, end: 20100330
  4. INEXIUM [Suspect]
     Dosage: 20 MG, QD
     Route: 048
     Dates: end: 20100330
  5. CACIT VITAMINE D3 [Suspect]
     Dosage: 1 DF, QD
     Route: 048
     Dates: end: 20100330
  6. MAGNE B6 TABLETS [Suspect]
     Dosage: 3 DF, QD
     Route: 048
     Dates: end: 20100330
  7. ADVAGRAF [Concomitant]
     Dosage: UNK
  8. LOXEN [Concomitant]
     Dosage: UNK
  9. PREVISCAN [Concomitant]
     Dosage: UNK

REACTIONS (2)
  - Leukopenia [Recovered/Resolved]
  - Neutropenia [Recovered/Resolved]
